FAERS Safety Report 23278752 (Version 2)
Quarter: 2024Q1

REPORT INFORMATION
  Report Type: Spontaneous
  Country: JP (occurrence: JP)
  Receive Date: 20231208
  Receipt Date: 20240308
  Transmission Date: 20240409
  Serious: Yes (Death, Other)
  Sender: FDA-Public Use
  Company Number: JP-TAKEDA-2023TJP016096

PATIENT
  Age: 61 Year

DRUGS (2)
  1. NIVOLUMAB [Suspect]
     Active Substance: NIVOLUMAB
     Indication: Renal cancer metastatic
     Dosage: UNK
  2. CABOMETYX [Suspect]
     Active Substance: CABOZANTINIB S-MALATE
     Indication: Renal cancer metastatic
     Dosage: UNK
     Route: 048

REACTIONS (3)
  - Malignant neoplasm progression [Fatal]
  - Cachexia [Unknown]
  - Decreased appetite [Unknown]
